FAERS Safety Report 15117166 (Version 3)
Quarter: 2018Q4

REPORT INFORMATION
  Report Type: Report from Study
  Country: IL (occurrence: IL)
  Receive Date: 20180706
  Receipt Date: 20181203
  Transmission Date: 20190204
  Serious: Yes (Other)
  Sender: FDA-Public Use
  Company Number: PHHY2018IL035076

PATIENT
  Sex: Female

DRUGS (1)
  1. COSENTYX [Suspect]
     Active Substance: SECUKINUMAB
     Indication: PSORIATIC ARTHROPATHY
     Dosage: 300 MG, QMO
     Route: 058
     Dates: start: 20171109

REACTIONS (4)
  - Urinary tract infection [Recovered/Resolved]
  - Panophthalmitis [Recovered/Resolved]
  - Uveitis [Not Recovered/Not Resolved]
  - Pharyngitis [Not Recovered/Not Resolved]
